FAERS Safety Report 10666537 (Version 1)
Quarter: 2014Q4

REPORT INFORMATION
  Report Type: Spontaneous
  Country: US (occurrence: US)
  Receive Date: 20141221
  Receipt Date: 20141221
  Transmission Date: 20150529
  Serious: Yes (Hospitalization, Other)
  Sender: FDA-Public Use
  Company Number: US-GLAXOSMITHKLINE-US2014037124

PATIENT
  Age: 61 Year
  Sex: Female

DRUGS (7)
  1. FLONASE [Suspect]
     Active Substance: FLUTICASONE PROPIONATE
     Indication: NASAL DISORDER
     Route: 045
     Dates: start: 2002
  2. CPAP (CONTINUOUS POSITIVE AIRWAY PRESSURE) [Concomitant]
  3. MEDICATION UNKNOWN [Concomitant]
     Active Substance: UNSPECIFIED INGREDIENT
  4. VENTOLIN HFA [Suspect]
     Active Substance: ALBUTEROL SULFATE
     Indication: ASTHMA
     Route: 055
     Dates: start: 2011
  5. ADVAIR DISKUS [Suspect]
     Active Substance: FLUTICASONE PROPIONATE\SALMETEROL XINAFOATE
     Indication: ASTHMA
     Dosage: 1 PUFF(S), BID
     Route: 055
     Dates: start: 1991
  6. PANCREATIC EXTRACT (MEDICATION UNKNOWN) [Concomitant]
  7. PNEUMONIA SHOT [Concomitant]
     Active Substance: PNEUMOCOCCAL VACCINE POLYVALENT

REACTIONS (10)
  - Blood sodium decreased [Unknown]
  - Cardiac disorder [Unknown]
  - Expired product administered [Unknown]
  - Fatigue [Unknown]
  - Chest discomfort [Unknown]
  - Dyspnoea [Unknown]
  - Myocardial infarction [Unknown]
  - Asthma [Not Recovered/Not Resolved]
  - Hypotension [Unknown]
  - Blood magnesium decreased [Unknown]

NARRATIVE: CASE EVENT DATE: 201411
